FAERS Safety Report 25592010 (Version 1)
Quarter: 2025Q3

REPORT INFORMATION
  Report Type: Spontaneous
  Country: GB (occurrence: GB)
  Receive Date: 20250722
  Receipt Date: 20250722
  Transmission Date: 20251021
  Serious: Yes (Other)
  Sender: ALEXION PHARMACEUTICALS
  Company Number: GB-MHRA-TPP44108876C11276015YC1752499894723

PATIENT
  Age: 86 Year
  Sex: Male
  Weight: 77 kg

DRUGS (7)
  1. DAPAGLIFLOZIN [Suspect]
     Active Substance: DAPAGLIFLOZIN
     Dosage: 1 DOSAGE FORM, QD
     Route: 065
     Dates: start: 20250115
  2. BISOPROLOL [Concomitant]
     Active Substance: BISOPROLOL
     Route: 065
     Dates: start: 20250115
  3. DIGOXIN [Concomitant]
     Active Substance: DIGOXIN
     Route: 065
     Dates: start: 20250115
  4. ENTRESTO [Concomitant]
     Active Substance: SACUBITRIL\VALSARTAN
     Dosage: TAKE ONE TWICE A DAY
     Route: 065
     Dates: start: 20250115
  5. MINERAL OIL\PARAFFIN [Concomitant]
     Active Substance: MINERAL OIL\PARAFFIN
     Route: 065
  6. Hyabak [Concomitant]
     Dosage: UNK, QD
     Route: 065
     Dates: start: 20250115
  7. OMEPRAZOLE [Concomitant]
     Active Substance: OMEPRAZOLE
     Route: 065
     Dates: start: 20250115

REACTIONS (3)
  - Dehydration [Recovered/Resolved]
  - Diarrhoea [Unknown]
  - Euglycaemic diabetic ketoacidosis [Recovered/Resolved]
